FAERS Safety Report 21672802 (Version 1)
Quarter: 2022Q4

REPORT INFORMATION
  Report Type: Report from Study
  Country: US (occurrence: US)
  Receive Date: 20221202
  Receipt Date: 20221202
  Transmission Date: 20230113
  Serious: No
  Sender: FDA-Public Use
  Company Number: US-ABBVIE-4188806

PATIENT
  Age: 60 Year
  Sex: Male
  Weight: 88 kg

DRUGS (3)
  1. RINVOQ [Suspect]
     Active Substance: UPADACITINIB
     Indication: Rheumatoid arthritis
     Route: 048
     Dates: start: 20211029, end: 202112
  2. METHOTREXATE [Concomitant]
     Active Substance: METHOTREXATE
     Indication: Product used for unknown indication
     Dates: start: 201901
  3. FOLIC ACID [Concomitant]
     Active Substance: FOLIC ACID
     Indication: Product used for unknown indication

REACTIONS (3)
  - Fibrin D dimer increased [Unknown]
  - Adverse drug reaction [Unknown]
  - Blood homocysteine abnormal [Unknown]

NARRATIVE: CASE EVENT DATE: 20211201
